FAERS Safety Report 9767444 (Version 2)
Quarter: 2014Q1

REPORT INFORMATION
  Report Type: Report from Study
  Country: MX (occurrence: MX)
  Receive Date: 20131217
  Receipt Date: 20140124
  Transmission Date: 20141002
  Serious: Yes (Other)
  Sender: FDA-Public Use
  Company Number: PHHY2013MX146481

PATIENT
  Age: 56 Year
  Sex: Female

DRUGS (2)
  1. ACLASTA [Suspect]
     Indication: OSTEOPOROSIS
     Dosage: 5 MG / 100 ML, ANNUALLY
     Route: 042
     Dates: start: 201312
  2. SHARK-LIVER OIL [Concomitant]
     Indication: ARTHROPATHY
     Dosage: 1 UKN, QD
     Dates: start: 201311

REACTIONS (10)
  - Haemorrhoids [Not Recovered/Not Resolved]
  - Burning sensation [Not Recovered/Not Resolved]
  - Pain [Not Recovered/Not Resolved]
  - Blood pressure decreased [Not Recovered/Not Resolved]
  - Diarrhoea [Not Recovered/Not Resolved]
  - Malaise [Not Recovered/Not Resolved]
  - Faeces discoloured [Not Recovered/Not Resolved]
  - Dehydration [Not Recovered/Not Resolved]
  - Eye swelling [Not Recovered/Not Resolved]
  - Depression [Unknown]
